FAERS Safety Report 20489040 (Version 1)
Quarter: 2022Q1

REPORT INFORMATION
  Report Type: Spontaneous
  Country: BR (occurrence: BR)
  Receive Date: 20220218
  Receipt Date: 20220218
  Transmission Date: 20220424
  Serious: Yes (Other)
  Sender: FDA-Public Use
  Company Number: BR-KOREA IPSEN Pharma-2022-04075

PATIENT
  Sex: Female

DRUGS (4)
  1. BOTULINUM TOXIN TYPE A [Suspect]
     Active Substance: BOTULINUM TOXIN TYPE A
     Indication: Product used for unknown indication
     Dosage: NOT REPORTED
     Route: 023
  2. AMLODIPINE BESYLATE [Concomitant]
     Active Substance: AMLODIPINE BESYLATE
     Route: 048
  3. ATENOLOL [Concomitant]
     Active Substance: ATENOLOL
     Route: 048
  4. LOSARTAN POTASSIUM [Concomitant]
     Active Substance: LOSARTAN POTASSIUM
     Route: 048

REACTIONS (6)
  - Urticaria [Unknown]
  - Nausea [Unknown]
  - Hypertension [Unknown]
  - Palpitations [Unknown]
  - Decreased appetite [Unknown]
  - Pain [Unknown]

NARRATIVE: CASE EVENT DATE: 20170322
